FAERS Safety Report 8916954 (Version 2)
Quarter: 2013Q1

REPORT INFORMATION
  Report Type: Spontaneous
  Country: US (occurrence: US)
  Receive Date: 20121120
  Receipt Date: 20130121
  Transmission Date: 20140127
  Serious: No
  Sender: FDA-Public Use
  Company Number: US-009507513-1211USA002452

PATIENT
  Age: 54 None
  Sex: Male

DRUGS (8)
  1. PEGINTRON [Suspect]
     Indication: HEPATITIS C
     Dosage: 150 MICROGRAM, QW
     Dates: start: 20120913
  2. VICTRELIS [Suspect]
     Dosage: 800 MG, Q8H
     Route: 048
  3. RIBASPHERE [Suspect]
     Dosage: 3 DF, BID
  4. ALPRAZOLAM [Concomitant]
     Dosage: UNK
  5. OLANZAPINE [Concomitant]
     Dosage: UNK
  6. PROPRANOLOL HYDROCHLORIDE [Concomitant]
     Dosage: UNK
  7. PROCHLORPERAZINE [Concomitant]
     Dosage: UNK
  8. NAPROXEN [Concomitant]
     Dosage: UNK

REACTIONS (3)
  - Contusion [Recovered/Resolved]
  - Product quality issue [Unknown]
  - Inappropriate schedule of drug administration [Unknown]
